FAERS Safety Report 8204952-3 (Version None)
Quarter: 2012Q1

REPORT INFORMATION
  Report Type: 
  Country: None (occurrence: None)
  Receive Date: 20120313
  Receipt Date: 20120309
  Transmission Date: 20120608
  Serious: No
  Sender: FDA-Public Use
  Company Number: US-PFIZER INC-2012063542

PATIENT
  Sex: Female

DRUGS (4)
  1. CORTEF [Suspect]
     Indication: ADRENAL INSUFFICIENCY
     Dosage: UNK
  2. SYNTHROID [Suspect]
     Indication: AUTOIMMUNE THYROIDITIS
     Dosage: 88 UG, 1X/DAY
     Route: 048
     Dates: start: 19980101
  3. THYROID TAB [Concomitant]
     Dosage: UNK
  4. CYTOMEL [Suspect]
     Indication: TRI-IODOTHYRONINE DECREASED
     Dosage: 5 MG, 2X/DAY
     Route: 048
     Dates: start: 20100801

REACTIONS (7)
  - FATIGUE [None]
  - LETHARGY [None]
  - DYSPEPSIA [None]
  - FREQUENT BOWEL MOVEMENTS [None]
  - FEELING ABNORMAL [None]
  - PARAESTHESIA [None]
  - DIARRHOEA [None]
